FAERS Safety Report 12554790 (Version 2)
Quarter: 2016Q4

REPORT INFORMATION
  Report Type: Spontaneous
  Country: US (occurrence: US)
  Receive Date: 20160713
  Receipt Date: 20161025
  Transmission Date: 20170207
  Serious: No
  Sender: FDA-Public Use
  Company Number: US-BIOMARINAP-US-2016-110412

PATIENT
  Sex: Female

DRUGS (1)
  1. KUVAN [Suspect]
     Active Substance: SAPROPTERIN DIHYDROCHLORIDE
     Dosage: 10 MG/KG, UNK
     Route: 065

REACTIONS (7)
  - Dental caries [Unknown]
  - Hallucination [Recovered/Resolved]
  - Lip disorder [Unknown]
  - Hepatomegaly [Unknown]
  - Limb asymmetry [Unknown]
  - Rhinorrhoea [Unknown]
  - Growth accelerated [Unknown]
